FAERS Safety Report 11875379 (Version 1)
Quarter: 2015Q4

REPORT INFORMATION
  Report Type: Spontaneous
  Country: US (occurrence: US)
  Receive Date: 20151229
  Receipt Date: 20151229
  Transmission Date: 20160305
  Serious: No
  Sender: FDA-Public Use
  Company Number: US-PFIZER INC-2015429324

PATIENT
  Sex: Male

DRUGS (5)
  1. DOXEPIN [Interacting]
     Active Substance: DOXEPIN
     Dosage: 75 MG, UNK
  2. DOXEPIN [Interacting]
     Active Substance: DOXEPIN
     Indication: PRURITUS
     Dosage: 10 MG, UNK
  3. DOXEPIN [Interacting]
     Active Substance: DOXEPIN
     Dosage: 50 MG, UNK
  4. ZOLOFT [Suspect]
     Active Substance: SERTRALINE HYDROCHLORIDE
     Indication: ANXIETY
     Dosage: UNK
     Dates: end: 2012
  5. DOXEPIN [Interacting]
     Active Substance: DOXEPIN
     Dosage: 25 MG, AS NEEDED

REACTIONS (1)
  - Drug interaction [Unknown]
